FAERS Safety Report 7677126-2 (Version None)
Quarter: 2011Q3

REPORT INFORMATION
  Report Type: 
  Country: None (occurrence: None)
  Receive Date: 20110810
  Receipt Date: 20110810
  Transmission Date: 20111222
  Serious: No
  Sender: FDA-Public Use
  Company Number: None

PATIENT
  Age: 72 Year
  Sex: Male
  Weight: 114.2 kg

DRUGS (3)
  1. PAMIDRONATE DISODIUM [Suspect]
     Indication: RENAL OSTEODYSTROPHY
     Dosage: 60 MG ONCE IV
     Route: 042
     Dates: start: 20110627, end: 20110627
  2. PAMIDRONATE DISODIUM [Suspect]
     Indication: HYPERCALCAEMIA
     Dosage: 60 MG ONCE IV
     Route: 042
     Dates: start: 20110627, end: 20110627
  3. PAMIDRONATE DISODIUM [Suspect]
     Indication: MULTIPLE MYELOMA
     Dosage: 60 MG ONCE IV
     Route: 042
     Dates: start: 20110627, end: 20110627

REACTIONS (2)
  - UVEITIS [None]
  - SCLERITIS [None]
